FAERS Safety Report 21208785 (Version 2)
Quarter: 2022Q3

REPORT INFORMATION
  Report Type: Spontaneous
  Country: JP (occurrence: JP)
  Receive Date: 20220812
  Receipt Date: 20220818
  Transmission Date: 20221026
  Serious: Yes (Other)
  Sender: FDA-Public Use
  Company Number: JP-GSKNCCC-Case-01551331_AE-61039

PATIENT

DRUGS (1)
  1. VALTREX [Suspect]
     Active Substance: VALACYCLOVIR HYDROCHLORIDE
     Indication: Genital herpes
     Dosage: 500 MG, QD
     Route: 048
     Dates: start: 20220808

REACTIONS (3)
  - Blindness [Unknown]
  - Underdose [Unknown]
  - Inappropriate schedule of product administration [Unknown]
